FAERS Safety Report 6101503-4 (Version None)
Quarter: 2009Q1

REPORT INFORMATION
  Report Type: 
  Country: None (occurrence: None)
  Receive Date: 20090304
  Receipt Date: 20090224
  Transmission Date: 20090719
  Serious: Yes (Other)
  Sender: FDA-Public Use
  Company Number: US-BAYER-200841389NA

PATIENT
  Age: 23 Year
  Sex: Female

DRUGS (3)
  1. MIRENA [Suspect]
     Indication: CONTRACEPTION
     Route: 015
     Dates: start: 20081205, end: 20081205
  2. VITAMIN TAB [Concomitant]
  3. IRON [Concomitant]

REACTIONS (1)
  - UTERINE RUPTURE [None]
